FAERS Safety Report 6141826-6 (Version None)
Quarter: 2009Q2

REPORT INFORMATION
  Report Type: 
  Country: None (occurrence: None)
  Receive Date: 20090402
  Receipt Date: 20090331
  Transmission Date: 20091009
  Serious: Yes (Other)
  Sender: FDA-Public Use
  Company Number: PE-BRISTOL-MYERS SQUIBB COMPANY-14568398

PATIENT
  Age: 50 Year

DRUGS (1)
  1. IXEMPRA KIT [Suspect]
     Dosage: CYCLE-6

REACTIONS (1)
  - VOCAL CORD PARALYSIS [None]
